FAERS Safety Report 7793891-8 (Version None)
Quarter: 2011Q4

REPORT INFORMATION
  Report Type: 
  Country: None (occurrence: None)
  Receive Date: 20111004
  Receipt Date: 20110926
  Transmission Date: 20120403
  Serious: No
  Sender: FDA-Public Use
  Company Number: US-BIOGENIDEC-2010BI042792

PATIENT
  Age: 39 Year
  Sex: Female

DRUGS (3)
  1. BENADRYL [Concomitant]
     Indication: PREMEDICATION
     Route: 042
  2. ACNE MEDICATION (NOS) [Concomitant]
     Indication: ACNE
  3. TYSABRI [Suspect]
     Indication: MULTIPLE SCLEROSIS
     Route: 042
     Dates: start: 20101117

REACTIONS (25)
  - MUSCLE SPASMS [None]
  - SOMNOLENCE [None]
  - VAGINAL HAEMORRHAGE [None]
  - VAGINAL DISCHARGE [None]
  - DIZZINESS [None]
  - FUNGAL INFECTION [None]
  - HEADACHE [None]
  - ASTHENIA [None]
  - ABDOMINAL PAIN [None]
  - THROAT TIGHTNESS [None]
  - ACNE [None]
  - ARTHRALGIA [None]
  - SPEECH DISORDER [None]
  - DYSSTASIA [None]
  - BACK PAIN [None]
  - FEELING COLD [None]
  - GENERAL SYMPTOM [None]
  - DIARRHOEA [None]
  - VULVOVAGINAL DRYNESS [None]
  - HOT FLUSH [None]
  - DRUG SPECIFIC ANTIBODY PRESENT [None]
  - RASH PAPULAR [None]
  - PARAESTHESIA [None]
  - BURNING SENSATION [None]
  - FATIGUE [None]
